FAERS Safety Report 24718550 (Version 1)
Quarter: 2024Q4

REPORT INFORMATION
  Report Type: Spontaneous
  Country: US (occurrence: None)
  Receive Date: 20241210
  Receipt Date: 20241210
  Transmission Date: 20250114
  Serious: Yes (Hospitalization)
  Sender: Public
  Company Number: None

PATIENT
  Age: 61 Year
  Sex: Male
  Weight: 88 kg

DRUGS (1)
  1. DAPTOMYCIN [Suspect]
     Active Substance: DAPTOMYCIN
     Dosage: FREQUENCY : DAILY;?
     Route: 042

REACTIONS (13)
  - Malaise [None]
  - Asthenia [None]
  - Pyrexia [None]
  - Chills [None]
  - Hyperhidrosis [None]
  - Headache [None]
  - Myalgia [None]
  - Blood creatine phosphokinase increased [None]
  - Eosinophilia [None]
  - Leukocytosis [None]
  - Red blood cell sedimentation rate increased [None]
  - Noninfectious peritonitis [None]
  - Therapy change [None]

NARRATIVE: CASE EVENT DATE: 20211102
